FAERS Safety Report 24546130 (Version 1)
Quarter: 2024Q4

REPORT INFORMATION
  Report Type: Report from Study
  Country: CA (occurrence: CA)
  Receive Date: 20241024
  Receipt Date: 20241024
  Transmission Date: 20250114
  Serious: Yes (Other)
  Sender: ABBVIE
  Company Number: CA-ABBVIE-5936291

PATIENT
  Age: 58 Year
  Sex: Male

DRUGS (4)
  1. FOSCARBIDOPA\FOSLEVODOPA [Suspect]
     Active Substance: FOSCARBIDOPA\FOSLEVODOPA
     Indication: Parkinson^s disease
     Route: 058
     Dates: start: 20240911
  2. RASAGILINE [Concomitant]
     Active Substance: RASAGILINE
     Indication: Product used for unknown indication
     Dosage: METHYL
  3. CARBIDOPA AND LEVODOPA [Concomitant]
     Active Substance: CARBIDOPA\LEVODOPA
     Indication: Product used for unknown indication
     Dosage: CONTROL RELEASE A 100MG/25MG
  4. NEUPRO [Concomitant]
     Active Substance: ROTIGOTINE
     Indication: Product used for unknown indication

REACTIONS (33)
  - Loss of consciousness [Unknown]
  - Injection site pain [Unknown]
  - On and off phenomenon [Unknown]
  - Injection site rash [Not Recovered/Not Resolved]
  - Malaise [Unknown]
  - Injection site discomfort [Unknown]
  - Injection site pain [Not Recovered/Not Resolved]
  - Injection site hypersensitivity [Unknown]
  - Catheter site papule [Unknown]
  - Infusion site pain [Unknown]
  - Catheter site induration [Unknown]
  - Catheter site induration [Unknown]
  - Illness [Unknown]
  - Asthenia [Unknown]
  - Infusion site bruising [Unknown]
  - Pain [Unknown]
  - Dizziness [Not Recovered/Not Resolved]
  - Syncope [Unknown]
  - Burning sensation [Not Recovered/Not Resolved]
  - Infection [Recovered/Resolved]
  - Catheter site irritation [Unknown]
  - Catheter site pain [Unknown]
  - Influenza [Unknown]
  - Injection site induration [Unknown]
  - Hyperhidrosis [Unknown]
  - Fall [Unknown]
  - Skin discolouration [Unknown]
  - Injection site reaction [Unknown]
  - Catheter site erythema [Unknown]
  - Infusion site inflammation [Unknown]
  - Infusion site induration [Unknown]
  - Catheter site pain [Unknown]
  - Infusion site mass [Unknown]

NARRATIVE: CASE EVENT DATE: 20240101
